FAERS Safety Report 9475243 (Version 2)
Quarter: 2013Q3

REPORT INFORMATION
  Report Type: Report from Study
  Country: US (occurrence: US)
  Receive Date: 20130825
  Receipt Date: 20130910
  Transmission Date: 20140515
  Serious: Yes (Life-Threatening, Hospitalization)
  Sender: FDA-Public Use
  Company Number: US-009507513-1308USA010350

PATIENT
  Age: 38 Year
  Sex: Male
  Weight: 66.6 kg

DRUGS (3)
  1. VORINOSTAT [Suspect]
     Indication: ACUTE MYELOID LEUKAEMIA
     Dosage: 500MG (3X/DAY) PO ON DAYS 1-3 (DAILY DOSE= 1500MG)
     Route: 048
     Dates: start: 20130708, end: 20130710
  2. IDARUBICIN [Suspect]
     Indication: ACUTE MYELOID LEUKAEMIA
     Dosage: 12 MG/M2+DAY IV OVER 15 MIN ON DAYS 4-6 CYCLE= 28 DAYS
     Route: 042
     Dates: start: 20130711, end: 20130713
  3. CYTARABINE [Suspect]
     Indication: ACUTE MYELOID LEUKAEMIA
     Dosage: 1500MG/M2/DAY CONTINUOUS IV INFUSION ON DAYS 4-7 (CYCLE 1) CYCLE=28 DAYS
     Route: 042
     Dates: start: 20130711, end: 20130714

REACTIONS (2)
  - Sepsis [Recovering/Resolving]
  - Lower gastrointestinal haemorrhage [Recovering/Resolving]
